APPROVED DRUG PRODUCT: OSELTAMIVIR PHOSPHATE
Active Ingredient: OSELTAMIVIR PHOSPHATE
Strength: EQ 6MG BASE/ML
Dosage Form/Route: FOR SUSPENSION;ORAL
Application: A217303 | Product #001 | TE Code: AB
Applicant: PHARMOBEDIENT CONSULTING LLC
Approved: Jul 2, 2024 | RLD: No | RS: No | Type: RX